FAERS Safety Report 4662329-1 (Version None)
Quarter: 2005Q2

REPORT INFORMATION
  Report Type: 
  Country: None (occurrence: None)
  Receive Date: 20050516
  Receipt Date: 20040824
  Transmission Date: 20051028
  Serious: Yes (Death, Hospitalization, Other)
  Sender: FDA-Public Use
  Company Number: AU-2004-BP-07127AU

PATIENT
  Sex: Male

DRUGS (2)
  1. MOBIC [Suspect]
     Route: 048
     Dates: start: 20021126, end: 20021204
  2. ENALAPRIL MALEATE [Concomitant]
     Route: 048

REACTIONS (3)
  - LUNG NEOPLASM MALIGNANT [None]
  - OEDEMA [None]
  - RENAL FAILURE ACUTE [None]
